FAERS Safety Report 21773226 (Version 1)
Quarter: 2022Q4

REPORT INFORMATION
  Report Type: Spontaneous
  Country: US (occurrence: None)
  Receive Date: 20221221
  Receipt Date: 20221221
  Transmission Date: 20230113
  Serious: Yes (Life-Threatening, Hospitalization)
  Sender: FDA-Public Use
  Company Number: None

PATIENT
  Age: 19 Year
  Sex: Female
  Weight: 49.5 kg

DRUGS (3)
  1. SERTRALINE HYDROCHLORIDE [Suspect]
     Active Substance: SERTRALINE HYDROCHLORIDE
     Indication: Depression suicidal
     Dosage: OTHER QUANTITY : 50 TABLET(S);?FREQUENCY : DAILY;?
     Route: 048
     Dates: start: 20220113, end: 20221015
  2. TESTOSTERONE [Concomitant]
     Active Substance: TESTOSTERONE
  3. CYANOCOBALAMIN\DEXPANTHENOL\NIACINAMIDE\PYRIDOXINE HYDROCHLORIDE\RIBOF [Concomitant]
     Active Substance: CYANOCOBALAMIN\DEXPANTHENOL\NIACINAMIDE\PYRIDOXINE HYDROCHLORIDE\RIBOFLAVIN 5^-PHOSPHATE SODIUM\THIA

REACTIONS (5)
  - Suicidal ideation [None]
  - Overdose [None]
  - Confusional state [None]
  - Disorientation [None]
  - Withdrawal syndrome [None]

NARRATIVE: CASE EVENT DATE: 20220828
